FAERS Safety Report 5275754-5 (Version None)
Quarter: 2007Q1

REPORT INFORMATION
  Report Type: 
  Country: None (occurrence: None)
  Receive Date: 20070326
  Receipt Date: 20070321
  Transmission Date: 20070707
  Serious: Yes (Other)
  Sender: FDA-Public Use
  Company Number: US-GLAXOSMITHKLINE-A0644102A

PATIENT
  Age: 87 Year
  Sex: Male

DRUGS (1)
  1. COREG [Suspect]
     Indication: ARRHYTHMIA
     Dosage: 3.125MG TWICE PER DAY
     Route: 048
     Dates: start: 20070301

REACTIONS (6)
  - BLINDNESS [None]
  - DIZZINESS [None]
  - HEART RATE DECREASED [None]
  - MUSCULAR WEAKNESS [None]
  - PRURITUS [None]
  - VISION BLURRED [None]
